FAERS Safety Report 17577284 (Version 1)
Quarter: 2020Q1

REPORT INFORMATION
  Report Type: Spontaneous
  Country: US (occurrence: US)
  Receive Date: 20200324
  Receipt Date: 20200324
  Transmission Date: 20200409
  Serious: No
  Sender: FDA-Public Use
  Company Number: US-SCILEX PHARMACEUTICALS INC.-2020SCX00007

PATIENT
  Age: 52 Year
  Sex: Male
  Weight: 118.82 kg

DRUGS (4)
  1. UNSPECIFIED ^INJECTION IN THE SPINE^ [Suspect]
     Active Substance: UNSPECIFIED INGREDIENT
  2. HYDROCODONE [Concomitant]
     Active Substance: HYDROCODONE
  3. UNSPECIFIED GEL [Concomitant]
     Active Substance: UNSPECIFIED INGREDIENT
  4. ZTLIDO [Suspect]
     Active Substance: LIDOCAINE
     Indication: PAIN
     Dosage: 1 DOSAGE UNITS, ONCE
     Route: 061
     Dates: start: 20200129, end: 20200130

REACTIONS (2)
  - Drug ineffective for unapproved indication [Recovered/Resolved]
  - Administration site urticaria [Recovered/Resolved]

NARRATIVE: CASE EVENT DATE: 202001
